FAERS Safety Report 19488565 (Version 5)
Quarter: 2023Q1

REPORT INFORMATION
  Report Type: Report from Study
  Country: US (occurrence: US)
  Receive Date: 20210702
  Receipt Date: 20230201
  Transmission Date: 20230417
  Serious: Yes (Other)
  Sender: FDA-Public Use
  Company Number: US-PFIZER INC-2021273378

PATIENT
  Age: 71 Year
  Sex: Female

DRUGS (3)
  1. IBRANCE [Suspect]
     Active Substance: PALBOCICLIB
     Indication: Breast cancer female
     Dosage: 100 MG,CYCLIC (DAILY, 2 WEEKS ON, 1 WEEK OFF)
     Route: 048
     Dates: start: 20210302, end: 2021
  2. IBRANCE [Suspect]
     Active Substance: PALBOCICLIB
     Dosage: 100 MG, CYCLIC (DAILY 1-21 OF 28 DAY CYCLE)
     Route: 048
     Dates: start: 20210429
  3. EXEMESTANE [Concomitant]
     Active Substance: EXEMESTANE
     Dosage: UNK

REACTIONS (12)
  - Neuropathy peripheral [Unknown]
  - Condition aggravated [Unknown]
  - Fatigue [Not Recovered/Not Resolved]
  - Diarrhoea [Not Recovered/Not Resolved]
  - Somnolence [Unknown]
  - Headache [Unknown]
  - Dizziness [Unknown]
  - Nausea [Unknown]
  - Abdominal discomfort [Unknown]
  - Vomiting [Unknown]
  - Off label use [Unknown]
  - Product dose omission issue [Unknown]

NARRATIVE: CASE EVENT DATE: 20210101
